FAERS Safety Report 6401645-X (Version None)
Quarter: 2009Q4

REPORT INFORMATION
  Report Type: 
  Country: None (occurrence: None)
  Receive Date: 20091015
  Receipt Date: 20091008
  Transmission Date: 20100525
  Serious: Yes (Hospitalization)
  Sender: FDA-Public Use
  Company Number: CA-ABBOTT-09P-028-0589930-00

PATIENT
  Sex: Female
  Weight: 92.162 kg

DRUGS (7)
  1. HUMIRA [Suspect]
     Indication: CROHN'S DISEASE
     Route: 058
     Dates: start: 20080813, end: 20090301
  2. HUMIRA [Suspect]
     Dates: start: 20091007
  3. STEMETIL [Concomitant]
     Indication: DRUG USE FOR UNKNOWN INDICATION
  4. NABILONE [Concomitant]
     Indication: DRUG USE FOR UNKNOWN INDICATION
  5. HYDROMORPHONE [Concomitant]
     Indication: DRUG USE FOR UNKNOWN INDICATION
  6. VITAMIN D [Concomitant]
     Indication: DRUG USE FOR UNKNOWN INDICATION
  7. CALCIUM [Concomitant]
     Indication: DRUG USE FOR UNKNOWN INDICATION

REACTIONS (9)
  - CROHN'S DISEASE [None]
  - DEPRESSED MOOD [None]
  - DIARRHOEA [None]
  - HYPOPHAGIA [None]
  - INCORRECT DRUG ADMINISTRATION DURATION [None]
  - LABORATORY TEST ABNORMAL [None]
  - NAUSEA [None]
  - TEARFULNESS [None]
  - VOMITING [None]
